FAERS Safety Report 9458608 (Version 2)
Quarter: 2013Q4

REPORT INFORMATION
  Report Type: Spontaneous
  Country: US (occurrence: None)
  Receive Date: 20130812
  Receipt Date: 20131203
  Transmission Date: 20140711
  Serious: Yes (Hospitalization)
  Sender: FDA-Public Use
  Company Number: AUR-APL-2013-06597

PATIENT
  Age: 66 Year
  Sex: Male
  Weight: 58.96 kg

DRUGS (12)
  1. METOPROLOL [Suspect]
     Indication: BLOOD PRESSURE ABNORMAL
  2. LYRICA [Suspect]
     Indication: NEUROPATHY PERIPHERAL
  3. PROCARDIA XL [Suspect]
     Indication: PRODUCT USED FOR UNKNOWN INDICATION
  4. OXCARBAZEPINE [Suspect]
     Indication: PRODUCT USED FOR UNKNOWN INDICATION
  5. NEORAL [Suspect]
     Indication: LIVER TRANSPLANT
  6. CELLCEPT [Suspect]
     Indication: PRODUCT USED FOR UNKNOWN INDICATION
  7. COUMADIN [Suspect]
     Indication: PRODUCT USED FOR UNKNOWN INDICATION
     Dosage: 1 D
     Dates: end: 2013
  8. CELEXA [Suspect]
     Indication: ANTIDEPRESSANT THERAPY
     Dosage: 1 D
     Dates: end: 2013
  9. RENVELA [Suspect]
     Indication: PRODUCT USED FOR UNKNOWN INDICATION
  10. XANAX [Suspect]
     Indication: PRODUCT USED FOR UNKNOWN INDICATION
     Dates: end: 2013
  11. WELLBUTRIN [Suspect]
     Indication: ANTIDEPRESSANT THERAPY
     Dates: end: 2013
  12. OXYCONTIN [Suspect]
     Indication: PRODUCT USED FOR UNKNOWN INDICATION
     Dates: end: 2013

REACTIONS (9)
  - Renal failure [None]
  - Pain in extremity [None]
  - Withdrawal syndrome [None]
  - Hypersomnia [None]
  - Fall [None]
  - Dialysis [None]
  - Aphagia [None]
  - Insomnia [None]
  - Pain [None]
